FAERS Safety Report 4806664-2 (Version None)
Quarter: 2005Q4

REPORT INFORMATION
  Report Type: 
  Country: None (occurrence: None)
  Receive Date: 20051019
  Receipt Date: 20051003
  Transmission Date: 20060501
  Serious: Yes (Hospitalization, Other)
  Sender: FDA-Public Use
  Company Number: US_0505117811

PATIENT
  Age: 43 Year
  Sex: Male
  Weight: 90 kg

DRUGS (10)
  1. ZYPREXA [Suspect]
     Indication: BIPOLAR DISORDER
     Dosage: 20 MG AT BEDTIME
     Dates: start: 20000803, end: 20020406
  2. FLUOXETINE [Concomitant]
  3. BUPROPION HCL [Concomitant]
  4. VITAMIN B COMPLEX CAP [Concomitant]
  5. DIGOXIN [Concomitant]
  6. ATORVASTATIN CALCIUM [Concomitant]
  7. CONCERTA [Concomitant]
  8. VITAMIN E (HERBAL OIL NOS) [Concomitant]
  9. CLONAZEPAM [Concomitant]
  10. ADDERALL 10 [Concomitant]

REACTIONS (12)
  - ALANINE AMINOTRANSFERASE INCREASED [None]
  - BLOOD ALKALINE PHOSPHATASE INCREASED [None]
  - BLOOD CHOLESTEROL ABNORMAL [None]
  - BLOOD TRIGLYCERIDES INCREASED [None]
  - CHEST DISCOMFORT [None]
  - DIABETES MELLITUS [None]
  - HYPERTENSION [None]
  - HYPOGLYCAEMIA [None]
  - MYOCARDIAL ISCHAEMIA [None]
  - PNEUMONIA [None]
  - PRODUCTIVE COUGH [None]
  - SPUTUM DISCOLOURED [None]
